FAERS Safety Report 15679471 (Version 2)
Quarter: 2018Q4

REPORT INFORMATION
  Report Type: Report from Study
  Country: US (occurrence: US)
  Receive Date: 20181203
  Receipt Date: 20181204
  Transmission Date: 20190205
  Serious: No
  Sender: FDA-Public Use
  Company Number: US-BRISTOL-MYERS SQUIBB COMPANY-BMS-2018-113398

PATIENT
  Sex: Male

DRUGS (1)
  1. NIVOLUMAB [Suspect]
     Active Substance: NIVOLUMAB
     Indication: RENAL CELL CARCINOMA
     Dosage: 240 MG, Q2WK
     Route: 042
     Dates: start: 20181119

REACTIONS (8)
  - Asthenia [Unknown]
  - Joint swelling [Unknown]
  - Appetite disorder [Unknown]
  - Dyspnoea [Unknown]
  - Insomnia [Unknown]
  - Fall [Unknown]
  - Blood pressure diastolic decreased [Unknown]
  - Skin abrasion [Unknown]
